FAERS Safety Report 25822579 (Version 1)
Quarter: 2025Q3

REPORT INFORMATION
  Report Type: Spontaneous
  Country: CA (occurrence: CA)
  Receive Date: 20250919
  Receipt Date: 20250919
  Transmission Date: 20251020
  Serious: Yes (Other)
  Sender: RANBAXY
  Company Number: CA-SUN PHARMACEUTICAL INDUSTRIES INC-2025R1-527728

PATIENT
  Age: 72 Year
  Sex: Male

DRUGS (2)
  1. FLUTICASONE PROPIONATE [Interacting]
     Active Substance: FLUTICASONE PROPIONATE
     Indication: Chronic obstructive pulmonary disease
  2. COBICISTAT [Interacting]
     Active Substance: COBICISTAT
     Indication: HIV infection
     Dosage: 150 MILLIGRAM, DAILY
     Route: 048

REACTIONS (2)
  - Adrenal insufficiency [Recovered/Resolved]
  - Drug interaction [Unknown]
